FAERS Safety Report 5090653-X (Version None)
Quarter: 2006Q3

REPORT INFORMATION
  Report Type: 
  Country: None (occurrence: None)
  Receive Date: 20060823
  Receipt Date: 20060807
  Transmission Date: 20061208
  Serious: Yes (Hospitalization)
  Sender: FDA-Public Use
  Company Number: US200607001237

PATIENT
  Sex: Female
  Weight: 54.4 kg

DRUGS (10)
  1. ZYPREXA [Suspect]
     Dosage: 10 MG, DAILY (1/D); SEE IMAGE
     Dates: start: 20021101, end: 20040401
  2. ZYPREXA [Suspect]
     Dosage: 10 MG, DAILY (1/D); SEE IMAGE
     Dates: start: 20040401, end: 20041201
  3. SEROQUEL [Concomitant]
  4. GEODON [Concomitant]
  5. ALPRAZOLAM [Concomitant]
  6. DEPAKOTE [Concomitant]
  7. BUPROPION HCL [Concomitant]
  8. PAXIL [Concomitant]
  9. VENLAFAXINE HCL [Concomitant]
  10. FLUOXETINE HCL [Concomitant]

REACTIONS (11)
  - BLOOD CHOLESTEROL ABNORMAL [None]
  - BLOOD TRIGLYCERIDES INCREASED [None]
  - CORONARY ARTERIAL STENT INSERTION [None]
  - DIABETES MELLITUS NON-INSULIN-DEPENDENT [None]
  - HYPERGLYCAEMIA [None]
  - HYPERTENSION [None]
  - HYPOGLYCAEMIA [None]
  - METABOLIC DISORDER [None]
  - MYOCARDIAL INFARCTION [None]
  - VISION BLURRED [None]
  - WEIGHT DECREASED [None]
